FAERS Safety Report 5839776-5 (Version None)
Quarter: 2008Q3

REPORT INFORMATION
  Report Type: 
  Country: None (occurrence: None)
  Receive Date: 20080811
  Receipt Date: 20080731
  Transmission Date: 20090109
  Serious: Yes (Hospitalization, Other)
  Sender: FDA-Public Use
  Company Number: FR-JNJFOC-20080503257

PATIENT
  Sex: Male
  Weight: 71 kg

DRUGS (7)
  1. PREZISTA [Suspect]
     Route: 048
  2. PREZISTA [Suspect]
     Indication: HIV INFECTION
     Route: 048
  3. NORVIR [Concomitant]
  4. NORVIR [Concomitant]
     Indication: HIV INFECTION
  5. PROZAC [Concomitant]
     Route: 065
  6. EFFEXOR [Concomitant]
     Route: 065
  7. EFFEXOR [Concomitant]
     Route: 065

REACTIONS (1)
  - CONVULSION [None]
